FAERS Safety Report 4682667-6 (Version None)
Quarter: 2005Q2

REPORT INFORMATION
  Report Type: 
  Country: None (occurrence: None)
  Receive Date: 20050606
  Receipt Date: 20050520
  Transmission Date: 20051028
  Serious: Yes (Hospitalization)
  Sender: FDA-Public Use
  Company Number: JP-GLAXOSMITHKLINE-B0382505A

PATIENT
  Sex: Female

DRUGS (5)
  1. PAXIL [Suspect]
     Route: 048
     Dates: end: 20050516
  2. DEPAKENE [Suspect]
     Dosage: 10U PER DAY
     Route: 048
     Dates: start: 20050516, end: 20050516
  3. CERCINE [Suspect]
     Route: 048
     Dates: start: 20050516, end: 20050516
  4. LOXONIN [Suspect]
     Route: 048
  5. GASTER [Suspect]
     Route: 048
     Dates: start: 20050516, end: 20050516

REACTIONS (2)
  - OVERDOSE [None]
  - PYREXIA [None]
